FAERS Safety Report 6665273-3 (Version None)
Quarter: 2010Q1

REPORT INFORMATION
  Report Type: 
  Country: None (occurrence: None)
  Receive Date: 20100331
  Receipt Date: 20100329
  Transmission Date: 20100710
  Serious: Yes (Other)
  Sender: FDA-Public Use
  Company Number: RB-05680-2010

PATIENT
  Age: 65 Year
  Sex: Female

DRUGS (7)
  1. MUCINEX [Suspect]
     Indication: MULTIPLE ALLERGIES
     Dosage: 600 MG QD TOOK 1 TABLET A DAY ORAL, ORAL
     Route: 048
     Dates: start: 20090101
  2. MUCINEX [Suspect]
     Indication: RESPIRATORY TRACT CONGESTION
     Dosage: 600 MG QD TOOK 1 TABLET A DAY ORAL, ORAL
     Route: 048
     Dates: start: 20090101
  3. MUCINEX [Suspect]
     Indication: MULTIPLE ALLERGIES
     Dosage: 600 MG QD TOOK 1 TABLET A DAY ORAL, ORAL
     Route: 048
     Dates: start: 20100323
  4. MUCINEX [Suspect]
     Indication: RESPIRATORY TRACT CONGESTION
     Dosage: 600 MG QD TOOK 1 TABLET A DAY ORAL, ORAL
     Route: 048
     Dates: start: 20100323
  5. MUCINEX [Suspect]
  6. FLONASE [Concomitant]
  7. CLARITIN [Concomitant]

REACTIONS (5)
  - AGEUSIA [None]
  - BLOOD PRESSURE INCREASED [None]
  - HAEMOPTYSIS [None]
  - HYPOPHAGIA [None]
  - WEIGHT DECREASED [None]
